FAERS Safety Report 4434332-8 (Version None)
Quarter: 2004Q3

REPORT INFORMATION
  Report Type: 
  Country: None (occurrence: None)
  Receive Date: 20040825
  Receipt Date: 20040816
  Transmission Date: 20050211
  Serious: Yes (Hospitalization, Other)
  Sender: FDA-Public Use
  Company Number: HQWYE348617AUG04

PATIENT
  Age: 61 Year
  Sex: Female
  Weight: 52.21 kg

DRUGS (1)
  1. PREMARIN [Suspect]
     Indication: OESTROGEN REPLACEMENT THERAPY
     Dosage: ORAL
     Route: 048
     Dates: start: 19870101, end: 19930101

REACTIONS (3)
  - BREAST CANCER [None]
  - CARDIAC FAILURE CONGESTIVE [None]
  - RADIATION INJURY [None]
